FAERS Safety Report 5298789-5 (Version None)
Quarter: 2007Q2

REPORT INFORMATION
  Report Type: 
  Country: None (occurrence: None)
  Receive Date: 20070417
  Receipt Date: 20070406
  Transmission Date: 20071010
  Serious: Yes (Hospitalization)
  Sender: FDA-Public Use
  Company Number: US-ROCHE-467354

PATIENT
  Age: 27 Year
  Sex: Female
  Weight: 56.7 kg

DRUGS (3)
  1. ACCUTANE [Suspect]
     Indication: ACNE
     Route: 048
     Dates: start: 19971231, end: 19980428
  2. LOESTRIN 1.5/30 [Concomitant]
     Dosage: STRENGHT REPORTED AS 1/20.
     Route: 048
     Dates: start: 19980326
  3. AMOXICILLIN [Concomitant]
     Route: 048
     Dates: start: 19980326

REACTIONS (17)
  - CHOLELITHIASIS [None]
  - COLITIS [None]
  - COLITIS ULCERATIVE [None]
  - CROHN'S DISEASE [None]
  - DYSPHAGIA [None]
  - ENDOMETRIOSIS [None]
  - FATIGUE [None]
  - ILEITIS [None]
  - INFLAMMATORY BOWEL DISEASE [None]
  - IRON DEFICIENCY ANAEMIA [None]
  - MIGRAINE [None]
  - MUSCULOSKELETAL DISORDER [None]
  - NEPHROLITHIASIS [None]
  - NIGHT BLINDNESS [None]
  - OVARIAN CYST [None]
  - PERITONITIS [None]
  - SMALL INTESTINAL OBSTRUCTION [None]
